FAERS Safety Report 9422261 (Version 4)
Quarter: 2014Q2

REPORT INFORMATION
  Report Type: Spontaneous
  Country: FR (occurrence: FR)
  Receive Date: 20130726
  Receipt Date: 20140509
  Transmission Date: 20141212
  Serious: Yes (Life-Threatening, Hospitalization, Disabling)
  Sender: FDA-Public Use
  Company Number: FR-ASTRAZENECA-2013SE55930

PATIENT
  Age: 14399 Day
  Sex: Male
  Weight: 68 kg

DRUGS (12)
  1. XEROQUEL [Suspect]
     Indication: BIPOLAR DISORDER
     Route: 048
     Dates: start: 20121213, end: 20121213
  2. XEROQUEL [Suspect]
     Indication: PSYCHOTIC DISORDER
     Route: 048
     Dates: start: 20121213, end: 20121213
  3. XEROQUEL [Suspect]
     Indication: BIPOLAR DISORDER
     Route: 048
     Dates: start: 20121214, end: 20121214
  4. XEROQUEL [Suspect]
     Indication: PSYCHOTIC DISORDER
     Route: 048
     Dates: start: 20121214, end: 20121214
  5. XEROQUEL [Suspect]
     Indication: BIPOLAR DISORDER
     Route: 048
     Dates: start: 20121215, end: 20121215
  6. XEROQUEL [Suspect]
     Indication: PSYCHOTIC DISORDER
     Route: 048
     Dates: start: 20121215, end: 20121215
  7. XEROQUEL [Suspect]
     Indication: BIPOLAR DISORDER
     Route: 048
     Dates: end: 20130823
  8. XEROQUEL [Suspect]
     Indication: PSYCHOTIC DISORDER
     Route: 048
     Dates: end: 20130823
  9. HALDOL [Concomitant]
     Dates: start: 20121212, end: 20121214
  10. LEPTICUR [Concomitant]
     Indication: EXTRAPYRAMIDAL DISORDER
     Route: 048
     Dates: start: 20121212, end: 20121221
  11. DEPAMIDE [Concomitant]
     Indication: BIPOLAR DISORDER
     Route: 048
     Dates: start: 20121217, end: 20121220
  12. LYSANXIA [Concomitant]
     Indication: ANXIETY
     Route: 048
     Dates: start: 20121219, end: 20121220

REACTIONS (5)
  - Septic shock [Recovered/Resolved]
  - Megacolon [Recovered/Resolved]
  - Coma [Recovered/Resolved]
  - Colitis ischaemic [Recovered/Resolved]
  - Intestinal obstruction [Recovered/Resolved]
